FAERS Safety Report 9482800 (Version 3)
Quarter: 2013Q3

REPORT INFORMATION
  Report Type: Spontaneous
  Country: CH (occurrence: CH)
  Receive Date: 20130828
  Receipt Date: 20130905
  Transmission Date: 20140515
  Serious: Yes (Death)
  Sender: FDA-Public Use
  Company Number: CH-JNJFOC-20130813674

PATIENT
  Age: 93 Year
  Sex: Female

DRUGS (9)
  1. XARELTO [Suspect]
     Indication: ATRIAL FIBRILLATION
     Route: 048
     Dates: start: 20130812
  2. XARELTO [Suspect]
     Indication: CEREBROVASCULAR ACCIDENT PROPHYLAXIS
     Route: 048
     Dates: start: 20130812
  3. HEPARIN [Interacting]
     Indication: PRODUCT USED FOR UNKNOWN INDICATION
     Route: 065
  4. ACETYLSALICYLIC ACID [Interacting]
     Indication: PRODUCT USED FOR UNKNOWN INDICATION
     Route: 065
     Dates: start: 20130812
  5. COUMADIN [Interacting]
     Indication: PRODUCT USED FOR UNKNOWN INDICATION
     Route: 065
  6. PROTON PUMP INHIBITORS [Concomitant]
     Route: 065
  7. AMLODIPINE [Concomitant]
     Route: 065
  8. RANEXA [Concomitant]
     Route: 065
  9. NEBILET [Concomitant]
     Route: 065

REACTIONS (3)
  - Upper gastrointestinal haemorrhage [Fatal]
  - Hypovolaemic shock [Fatal]
  - Drug interaction [Unknown]
